FAERS Safety Report 6993159-3 (Version None)
Quarter: 2010Q3

REPORT INFORMATION
  Report Type: 
  Country: None (occurrence: None)
  Receive Date: 20100917
  Receipt Date: 20100527
  Transmission Date: 20110219
  Serious: Yes (Hospitalization)
  Sender: FDA-Public Use
  Company Number: US-ASTRAZENECA-2007UW14241

PATIENT
  Age: 13112 Day
  Sex: Male
  Weight: 104.3 kg

DRUGS (14)
  1. SEROQUEL [Suspect]
     Indication: BIPOLAR DISORDER
     Route: 048
     Dates: start: 19980909, end: 20070301
  2. ABILIFY [Concomitant]
  3. GEODON [Concomitant]
  4. HALDOL [Concomitant]
  5. NAVANE [Concomitant]
  6. RISPERDAL [Concomitant]
  7. STELAZINE [Concomitant]
  8. THORAZINE [Concomitant]
  9. TRILAFON [Concomitant]
  10. ZYPREXA [Concomitant]
  11. DEPAKOTE [Concomitant]
     Route: 048
     Dates: start: 19980909
  12. LUVOX [Concomitant]
     Dates: start: 19980922
  13. DIPHENHYDRAMIN [Concomitant]
     Dates: start: 19980922
  14. CLONAZEPAM [Concomitant]
     Dates: start: 19980922

REACTIONS (3)
  - PNEUMONIA [None]
  - TYPE 1 DIABETES MELLITUS [None]
  - TYPE 2 DIABETES MELLITUS [None]
